FAERS Safety Report 9332656 (Version 1)
Quarter: 2013Q2

REPORT INFORMATION
  Report Type: Spontaneous
  Country: US (occurrence: US)
  Receive Date: 20130606
  Receipt Date: 20130606
  Transmission Date: 20140414
  Serious: No
  Sender: FDA-Public Use
  Company Number: US-009507513-1305USA017198

PATIENT
  Sex: Female

DRUGS (1)
  1. NUVARING [Suspect]
     Dosage: ETONOGESTREL 0.120 MG(+) ETHINYL ESTRADIOL 0.015 MG, 1 RING FOR EVERY 4 WEEKS
     Route: 067

REACTIONS (3)
  - Device expulsion [Unknown]
  - Incorrect drug administration duration [Unknown]
  - No adverse event [Unknown]
